FAERS Safety Report 5836689-X (Version None)
Quarter: 2008Q3

REPORT INFORMATION
  Report Type: 
  Country: None (occurrence: None)
  Receive Date: 20080807
  Receipt Date: 20080729
  Transmission Date: 20090109
  Serious: Yes (Hospitalization)
  Sender: FDA-Public Use
  Company Number: FR-JNJFOC-20080706998

PATIENT
  Age: 44 Year
  Sex: Female

DRUGS (11)
  1. DOXORUBICIN HCL [Suspect]
     Route: 042
  2. DOXORUBICIN HCL [Suspect]
     Route: 042
  3. DOXORUBICIN HCL [Suspect]
     Route: 042
  4. DOXORUBICIN HCL [Suspect]
     Indication: HODGKIN'S DISEASE
     Route: 042
  5. GEMZAR [Suspect]
     Route: 042
  6. GEMZAR [Suspect]
     Route: 042
  7. GEMZAR [Suspect]
     Route: 042
  8. GEMZAR [Suspect]
     Indication: HODGKIN'S DISEASE
     Route: 042
  9. SKENAN [Concomitant]
     Route: 065
  10. MORPHINE [Concomitant]
     Route: 065
  11. ROCEPHIN [Concomitant]
     Route: 065

REACTIONS (1)
  - DERMATOSIS [None]
